FAERS Safety Report 6640226-X (Version None)
Quarter: 2010Q1

REPORT INFORMATION
  Report Type: 
  Country: None (occurrence: None)
  Receive Date: 20100318
  Receipt Date: 20100312
  Transmission Date: 20100710
  Serious: Yes (Hospitalization)
  Sender: FDA-Public Use
  Company Number: US-SANOFI-AVENTIS-2010SA015015

PATIENT
  Age: 73 Year
  Sex: Female

DRUGS (3)
  1. LANTUS [Suspect]
     Indication: DIABETES MELLITUS
     Dosage: DOSE:15 UNIT(S)
     Route: 058
     Dates: start: 20100101
  2. SOLOSTAR [Suspect]
     Indication: DIABETES MELLITUS
     Dosage: DOSE:15 UNIT(S)
     Route: 058
     Dates: start: 20100101
  3. INSULIN [Concomitant]
     Route: 065
     Dates: start: 20100301

REACTIONS (5)
  - CARDIAC FAILURE CONGESTIVE [None]
  - HYPERGLYCAEMIA [None]
  - POLLAKIURIA [None]
  - TREMOR [None]
  - VISION BLURRED [None]
